FAERS Safety Report 15190860 (Version 1)
Quarter: 2018Q3

REPORT INFORMATION
  Report Type: Report from Study
  Country: US (occurrence: US)
  Receive Date: 20180724
  Receipt Date: 20180724
  Transmission Date: 20181010
  Serious: Yes (Other)
  Sender: FDA-Public Use
  Company Number: US-BAYER-2018-113807

PATIENT
  Age: 55 Year
  Sex: Female

DRUGS (1)
  1. NEXAVAR [Suspect]
     Active Substance: SORAFENIB
     Indication: HEPATOCELLULAR CARCINOMA
     Dosage: 400 MG, BID
     Route: 048
     Dates: start: 20180612, end: 201806

REACTIONS (10)
  - Pyrexia [None]
  - Vomiting [None]
  - Palpitations [None]
  - Dizziness [None]
  - Chills [None]
  - Abdominal pain [None]
  - Skin discolouration [None]
  - Fatigue [None]
  - Dyspnoea [None]
  - Blister [None]

NARRATIVE: CASE EVENT DATE: 201806
